FAERS Safety Report 5737134-5 (Version None)
Quarter: 2008Q2

REPORT INFORMATION
  Report Type: 
  Country: None (occurrence: None)
  Receive Date: 20080513
  Receipt Date: 20080513
  Transmission Date: 20081010
  Serious: No
  Sender: FDA-Public Use
  Company Number: None

PATIENT
  Sex: Female

DRUGS (1)
  1. DIGITEK 0.25MG AVANTIS [Suspect]
     Dates: start: 20070707, end: 20080508

REACTIONS (1)
  - FATIGUE [None]
